FAERS Safety Report 12622751 (Version 1)
Quarter: 2016Q3

REPORT INFORMATION
  Report Type: Spontaneous
  Country: DE (occurrence: DE)
  Receive Date: 20160804
  Receipt Date: 20160804
  Transmission Date: 20161109
  Serious: Yes (Other)
  Sender: FDA-Public Use
  Company Number: DE-TEVA-681607GER

PATIENT
  Age: 69 Year
  Sex: Female

DRUGS (3)
  1. VERAPAMIL 240 MG RETARD [Concomitant]
  2. LISINOPRIL ABZ 10 MG TABLETTEN [Suspect]
     Active Substance: LISINOPRIL
     Indication: HYPERTENSION
     Dosage: 5 MILLIGRAM DAILY;
     Route: 048
     Dates: start: 2003
  3. METFORMIN 50/1000 [Concomitant]

REACTIONS (2)
  - Scleroderma [Not Recovered/Not Resolved]
  - Condition aggravated [None]
